FAERS Safety Report 5505815-4 (Version None)
Quarter: 2007Q4

REPORT INFORMATION
  Report Type: 
  Country: None (occurrence: None)
  Receive Date: 20071102
  Receipt Date: 20071025
  Transmission Date: 20080405
  Serious: Yes (Other)
  Sender: FDA-Public Use
  Company Number: FR-BOEHRINGER INGELHEIM PHARMACEUTICALS, INC.-2007-FF-00901FF

PATIENT
  Sex: Female
  Weight: 84 kg

DRUGS (19)
  1. SPIRIVA [Suspect]
     Indication: ASTHMA
     Route: 055
     Dates: start: 20060531
  2. SPIRIVA [Suspect]
     Indication: BRONCHIAL OBSTRUCTION
  3. AERIUS [Concomitant]
     Route: 048
  4. FORADIL [Concomitant]
  5. ALDACTONE [Concomitant]
  6. EUPHYLLINE [Concomitant]
     Route: 048
  7. HYDROCORTISONE ROUSSEL [Concomitant]
  8. CORTANCYL [Concomitant]
  9. DEROXAT [Concomitant]
  10. SPORANOX [Concomitant]
     Route: 048
  11. TRIFLUCAN [Concomitant]
     Route: 048
  12. VIRLIX [Concomitant]
     Route: 048
  13. VENTOLIN [Concomitant]
     Route: 048
  14. RANITIDINE HCL [Concomitant]
     Route: 048
  15. LASIX [Concomitant]
  16. EFFICORT [Concomitant]
  17. TEMESTA [Concomitant]
  18. TEMESTA [Concomitant]
  19. GALIEN CERAT [Concomitant]

REACTIONS (3)
  - ANGIOEDEMA [None]
  - DERMATITIS BULLOUS [None]
  - URTICARIA [None]
